FAERS Safety Report 7531794-4 (Version None)
Quarter: 2011Q2

REPORT INFORMATION
  Report Type: 
  Country: None (occurrence: None)
  Receive Date: 20110608
  Receipt Date: 20110603
  Transmission Date: 20111010
  Serious: Yes (Life-Threatening, Other)
  Sender: FDA-Public Use
  Company Number: JP-SANOFI-AVENTIS-2010SA044740

PATIENT
  Age: 55 Year
  Sex: Female
  Weight: 52 kg

DRUGS (9)
  1. AVASTIN [Suspect]
     Indication: RECTAL CANCER
     Route: 041
     Dates: start: 20091119, end: 20100624
  2. MAGNESIUM SULFATE [Concomitant]
     Route: 048
  3. OXALIPLATIN [Suspect]
     Indication: RECTAL CANCER
     Route: 041
     Dates: start: 20091029, end: 20100624
  4. XELODA [Suspect]
     Indication: RECTAL CANCER
     Route: 048
     Dates: start: 20091029, end: 20100628
  5. AMOBAN [Concomitant]
     Route: 048
  6. SELBEX [Concomitant]
     Route: 048
  7. LOXOPROFEN [Concomitant]
     Route: 048
  8. AMINOLEBAN [Concomitant]
     Indication: HEPATIC ENCEPHALOPATHY
     Route: 041
     Dates: start: 20100629
  9. NEUROVITAN [Concomitant]
     Route: 048

REACTIONS (1)
  - HYPERAMMONAEMIA [None]
